FAERS Safety Report 8160199-0 (Version None)
Quarter: 2012Q1

REPORT INFORMATION
  Report Type: 
  Country: None (occurrence: None)
  Receive Date: 20120223
  Receipt Date: 20120221
  Transmission Date: 20120608
  Serious: Yes (Hospitalization)
  Sender: FDA-Public Use
  Company Number: US-ALEXION PHARMACEUTICALS INC.-A201200315

PATIENT
  Sex: Female

DRUGS (7)
  1. NEXIUM [Concomitant]
     Indication: GASTROOESOPHAGEAL REFLUX DISEASE
     Dosage: UNK
  2. ZOLOFT [Concomitant]
     Indication: MENOPAUSE
     Dosage: UNK
  3. XANAX [Concomitant]
     Indication: ANXIETY
     Dosage: UNK
  4. SOLIRIS [Suspect]
     Indication: PAROXYSMAL NOCTURNAL HAEMOGLOBINURIA
     Dosage: 600 MG, Q2W
     Route: 042
     Dates: start: 20070101, end: 20070101
  5. SOLIRIS [Suspect]
     Dosage: 900 MG, Q2W
     Route: 042
     Dates: start: 20070101
  6. KEPPRA [Concomitant]
     Indication: CONVULSION
     Dosage: UNK
  7. IMITREX [Concomitant]
     Indication: MIGRAINE
     Dosage: UNK

REACTIONS (7)
  - SENSATION OF HEAVINESS [None]
  - CEREBRAL THROMBOSIS [None]
  - HEADACHE [None]
  - MONOPLEGIA [None]
  - PARAESTHESIA [None]
  - HYPOAESTHESIA [None]
  - BLOOD COUNT ABNORMAL [None]
